FAERS Safety Report 9821072 (Version 1)
Quarter: 2013Q4

REPORT INFORMATION
  Report Type: Spontaneous
  Country: US (occurrence: None)
  Receive Date: 20131025
  Receipt Date: 20131025
  Transmission Date: 20140711
  Serious: No
  Sender: FDA-Public Use
  Company Number: AP356-00016-SPO-US

PATIENT
  Age: 73 Year
  Sex: Female

DRUGS (4)
  1. BELVIQ (LORCASERIN HYDROCHLORIDE) [Suspect]
     Indication: DIABETES MELLITUS
     Route: 048
     Dates: start: 201306
  2. SYNTHROID (LEVOTHYROXINE SODIUM) [Concomitant]
  3. FLUOXETINE (FLUOXETINE) [Concomitant]
  4. IBUPROFEN (IBUPROFEN) [Concomitant]

REACTIONS (2)
  - Vaginal discharge [None]
  - Urine odour abnormal [None]
